FAERS Safety Report 21158135 (Version 1)
Quarter: 2022Q3

REPORT INFORMATION
  Report Type: Spontaneous
  Country: US (occurrence: None)
  Receive Date: 20220801
  Receipt Date: 20220801
  Transmission Date: 20221026
  Serious: Yes (Disabling, Other)
  Sender: FDA-Public Use
  Company Number: None

PATIENT
  Age: 68 Year
  Sex: Male
  Weight: 67 kg

DRUGS (10)
  1. LEVOFLOXACIN [Suspect]
     Active Substance: LEVOFLOXACIN
     Indication: Escherichia infection
     Dosage: OTHER QUANTITY : 5 TABLET(S);?FREQUENCY : DAILY;?
     Route: 048
     Dates: start: 20220528, end: 20220602
  2. Something implanted during surgery for inguinal hernia in 2017 [Concomitant]
  3. HYDROCODONE [Concomitant]
     Active Substance: HYDROCODONE
  4. ASPIRIN [Concomitant]
     Active Substance: ASPIRIN
  5. daily multi vitamiin [Concomitant]
  6. VITAMIN E [Concomitant]
     Active Substance: .ALPHA.-TOCOPHEROL
  7. VITAMIN C [Concomitant]
     Active Substance: ASCORBIC ACID
  8. GARLIC [Concomitant]
     Active Substance: GARLIC
  9. HERBALS\TURMERIC [Concomitant]
     Active Substance: HERBALS\TURMERIC
  10. colon cleansing capsules [Concomitant]

REACTIONS (5)
  - Neuralgia [None]
  - Dysstasia [None]
  - Gait disturbance [None]
  - Bedridden [None]
  - Pain [None]

NARRATIVE: CASE EVENT DATE: 20220528
